FAERS Safety Report 7638090-5 (Version None)
Quarter: 2011Q3

REPORT INFORMATION
  Report Type: 
  Country: None (occurrence: None)
  Receive Date: 20110720
  Receipt Date: 20110708
  Transmission Date: 20111222
  Serious: Yes (Hospitalization, Other)
  Sender: FDA-Public Use
  Company Number: 2010P1002570

PATIENT
  Age: 61 Year
  Sex: Female
  Weight: 65.7716 kg

DRUGS (38)
  1. FOXAMAX PLUS D [Concomitant]
  2. LACTULOSE [Concomitant]
  3. ABILIFY [Concomitant]
  4. AVELOX [Concomitant]
  5. AMBIEN CR [Concomitant]
  6. TRILEPTAL [Suspect]
     Dates: start: 20110501
  7. MYOVIEW [Suspect]
     Dates: start: 20100701, end: 20100701
  8. FENTANYL [Suspect]
     Indication: BACK PAIN
     Dosage: 50 MCG/HR;Q72H;TDER ; TDER
     Route: 062
     Dates: start: 20100101, end: 20101001
  9. FENTANYL [Suspect]
     Indication: BACK PAIN
     Dosage: 50 MCG/HR;Q72H;TDER ; TDER
     Route: 062
     Dates: start: 20110519
  10. LEXISCAN [Suspect]
     Dates: start: 20100701, end: 20100701
  11. IBUPROFEN [Concomitant]
  12. ZOFRAN [Concomitant]
  13. FENTANYL [Suspect]
     Indication: BACK PAIN
     Dosage: 1-2 PATCHES;Q72H;TDER
     Route: 062
     Dates: start: 20100101
  14. LORTAB [Suspect]
     Dates: end: 20110501
  15. MIRALAX [Concomitant]
  16. SKELAXIN [Concomitant]
  17. PRISTIQ [Concomitant]
  18. WELLBUTRIN XL [Concomitant]
  19. LORTAB [Concomitant]
  20. NORFLEX [Concomitant]
  21. PROMETHAZINE [Concomitant]
  22. OPANA [Suspect]
     Dates: end: 20100201
  23. ESTRADIOL [Concomitant]
  24. LYRICA [Concomitant]
  25. PROZAC [Concomitant]
  26. TYLENOL-500 [Concomitant]
  27. NYSTATIN SWISH AND SWALLOW [Concomitant]
  28. NUCYNTA [Concomitant]
  29. ROBAXIN [Concomitant]
  30. VITAMIN B-12 [Concomitant]
  31. FLEXERIL [Concomitant]
  32. COLACE [Concomitant]
  33. AMBIEN CR [Suspect]
  34. TORADOL [Suspect]
     Dosage: PRN
     Dates: start: 20100707, end: 20100710
  35. TORADOL [Suspect]
     Dosage: PRN
     Dates: start: 20100710
  36. VITAMIN B6/FOLIC ACID [Concomitant]
  37. FERROUS SULFATE TAB [Concomitant]
  38. PHENAZOPYRIDINE HCL TAB [Concomitant]

REACTIONS (20)
  - BLOOD CREATININE INCREASED [None]
  - NAUSEA [None]
  - STRESS [None]
  - PRODUCT ADHESION ISSUE [None]
  - CONSTIPATION [None]
  - MYOCARDIAL INFARCTION [None]
  - CONTUSION [None]
  - DEPRESSION [None]
  - RENAL IMPAIRMENT [None]
  - APPLICATION SITE HYPERSENSITIVITY [None]
  - DRUG INEFFECTIVE [None]
  - HYPOAESTHESIA [None]
  - PHOTOSENSITIVITY REACTION [None]
  - FATIGUE [None]
  - SWELLING [None]
  - RASH PRURITIC [None]
  - NEPHROLITHIASIS [None]
  - PALPITATIONS [None]
  - HEADACHE [None]
  - GASTROOESOPHAGEAL REFLUX DISEASE [None]
